FAERS Safety Report 6794759-6 (Version None)
Quarter: 2010Q2

REPORT INFORMATION
  Report Type: 
  Country: None (occurrence: None)
  Receive Date: 20100624
  Receipt Date: 20100624
  Transmission Date: 20101027
  Serious: No
  Sender: FDA-Public Use
  Company Number: None

PATIENT
  Sex: Female
  Weight: 53.5244 kg

DRUGS (2)
  1. HYDRALAZINE HCL [Suspect]
     Indication: HYPERTENSION
     Dosage: IV INJECTION 2 IV
     Route: 042
     Dates: start: 20100506
  2. HYDRALAZINE HCL [Suspect]
     Indication: HYPERTENSION
     Dosage: IV INJECTION 2 IV
     Route: 042
     Dates: start: 20100507

REACTIONS (2)
  - HEART RATE INCREASED [None]
  - OESOPHAGEAL PAIN [None]
